FAERS Safety Report 9553642 (Version 1)
Quarter: 2013Q3

REPORT INFORMATION
  Report Type: Spontaneous
  Country: US (occurrence: None)
  Receive Date: 20130916
  Receipt Date: 20130916
  Transmission Date: 20140515
  Serious: Yes (Other)
  Sender: FDA-Public Use
  Company Number: JPI-P-017023

PATIENT
  Age: 41 Year
  Sex: Female
  Weight: 81.19 kg

DRUGS (3)
  1. XYREM [Suspect]
     Indication: CATAPLEXY
     Dosage: 4.5 GM (2.25 GM, 2 IN 1 D), ORAL
     Route: 048
     Dates: start: 201105, end: 2011
  2. ARMODAFINIL [Suspect]
     Indication: CATAPLEXY
     Dates: start: 201101
  3. IBUPROFEN [Concomitant]

REACTIONS (13)
  - Weight decreased [None]
  - Dysgeusia [None]
  - Dysphonia [None]
  - Chest discomfort [None]
  - Feeling abnormal [None]
  - Hair growth abnormal [None]
  - Blood potassium decreased [None]
  - Dehydration [None]
  - Muscle spasms [None]
  - Enuresis [None]
  - Pain [None]
  - Dyspnoea [None]
  - Feeling drunk [None]
